FAERS Safety Report 25487460 (Version 2)
Quarter: 2025Q3

REPORT INFORMATION
  Report Type: Spontaneous
  Country: US (occurrence: US)
  Receive Date: 20250627
  Receipt Date: 20250709
  Transmission Date: 20251020
  Serious: Yes (Hospitalization, Other)
  Sender: APOTEX
  Company Number: US-APOTEX-2025AP009037

PATIENT
  Age: 13 Year
  Sex: Female

DRUGS (2)
  1. METFORMIN [Suspect]
     Active Substance: METFORMIN HYDROCHLORIDE
     Indication: Product used for unknown indication
     Route: 048
  2. SERTRALINE [Concomitant]
     Active Substance: SERTRALINE HYDROCHLORIDE
     Indication: Product used for unknown indication
     Route: 065

REACTIONS (21)
  - Acute kidney injury [Recovering/Resolving]
  - Suicide attempt [Unknown]
  - Electrocardiogram QT prolonged [Recovered/Resolved]
  - Hypothermia [Recovering/Resolving]
  - Cardiomyopathy [Recovered/Resolved]
  - Intentional overdose [Unknown]
  - Ventricular dysfunction [Recovered/Resolved]
  - Metabolic acidosis [Recovering/Resolving]
  - Hyperlactacidaemia [Recovering/Resolving]
  - Toxicity to various agents [Unknown]
  - Abdominal tenderness [Recovering/Resolving]
  - Sinus tachycardia [Recovered/Resolved]
  - Tachypnoea [Recovered/Resolved]
  - Mental status changes [Recovering/Resolving]
  - Hypotension [Recovered/Resolved]
  - Liver function test increased [Recovering/Resolving]
  - Coronary artery dilatation [Recovered/Resolved]
  - Pancreatitis [Recovering/Resolving]
  - Nausea [Recovering/Resolving]
  - Vomiting [Recovering/Resolving]
  - Abdominal pain [Recovering/Resolving]
